FAERS Safety Report 11803255 (Version 6)
Quarter: 2016Q3

REPORT INFORMATION
  Report Type: Report from Study
  Country: JP (occurrence: JP)
  Receive Date: 20151204
  Receipt Date: 20160707
  Transmission Date: 20161109
  Serious: Yes (Hospitalization)
  Sender: FDA-Public Use
  Company Number: JP-SEATTLE GENETICS-2015SGN01598

PATIENT

DRUGS (34)
  1. VINBLASTINE [Suspect]
     Active Substance: VINBLASTINE
     Dosage: UNK,Q14D
     Route: 042
     Dates: start: 20151006, end: 20151102
  2. CIPROFLOXACIN                      /00697202/ [Concomitant]
     Active Substance: CIPROFLOXACIN HYDROCHLORIDE
     Indication: UPPER RESPIRATORY TRACT INFLAMMATION
     Dosage: 200 MG, BID
     Route: 048
     Dates: start: 20151115, end: 20151122
  3. DOXORUBICIN [Suspect]
     Active Substance: DOXORUBICIN
     Dosage: UNK, Q14D
     Route: 042
     Dates: start: 20151208, end: 20160315
  4. DACARBAZINE. [Suspect]
     Active Substance: DACARBAZINE
     Dosage: UNK, Q2WEEKS
     Route: 042
     Dates: start: 20151208, end: 20160315
  5. BETAMETHASONE, DEXCHLORPHENIRAMINE [Suspect]
     Active Substance: BETAMETHASONE\DEXCHLORPHENIRAMINE
     Indication: RASH MACULO-PAPULAR
     Dosage: 1 DF, TID
     Route: 048
     Dates: start: 20150930, end: 20151019
  6. LOXOPROFEN EMEC [Concomitant]
     Active Substance: LOXOPROFEN
     Indication: PAIN
     Dosage: 60 MG, QD
     Route: 048
     Dates: start: 20150901
  7. ZOLPIDEM TARTRATE. [Concomitant]
     Active Substance: ZOLPIDEM TARTRATE
     Dosage: 5 MG, QD
     Route: 048
     Dates: start: 20150913, end: 20160423
  8. VINBLASTINE [Suspect]
     Active Substance: VINBLASTINE
     Indication: HODGKIN^S DISEASE
     Dosage: UNK, Q2WEEKS
     Route: 042
     Dates: start: 20150916, end: 20150916
  9. DACARBAZINE. [Suspect]
     Active Substance: DACARBAZINE
     Indication: HODGKIN^S DISEASE
     Dosage: UNK, Q2WEEKS
     Route: 042
     Dates: start: 20150916, end: 20150916
  10. LANSOPRAZOLE. [Concomitant]
     Active Substance: LANSOPRAZOLE
     Indication: PROPHYLAXIS AGAINST GASTROINTESTINAL ULCER
     Dosage: 15 MG, QD
     Route: 048
     Dates: start: 20150901
  11. CIPROFLOXACIN                      /00697202/ [Concomitant]
     Active Substance: CIPROFLOXACIN HYDROCHLORIDE
     Dosage: UNK
     Route: 048
     Dates: start: 20160423, end: 20160428
  12. BRENTUXIMAB VEDOTIN [Suspect]
     Active Substance: BRENTUXIMAB VEDOTIN
     Dosage: 49 MG, Q21D
     Route: 042
     Dates: start: 20151208, end: 20160315
  13. CODEINE PHOSPHATE [Concomitant]
     Active Substance: CODEINE PHOSPHATE
     Indication: COUGH
     Dosage: 60 MG, TID
     Route: 048
     Dates: start: 20150916
  14. MAGMITT [Concomitant]
     Active Substance: MAGNESIUM OXIDE
     Dosage: 330 MG, BID
     Route: 048
     Dates: start: 20150901
  15. DOXORUBICIN [Suspect]
     Active Substance: DOXORUBICIN
     Dosage: UNK, Q14D
     Route: 042
     Dates: start: 20151006, end: 20151102
  16. VINBLASTINE [Suspect]
     Active Substance: VINBLASTINE
     Dosage: UNK, Q14D
     Route: 042
     Dates: start: 20151208, end: 20160315
  17. ATOVAQUONE. [Suspect]
     Active Substance: ATOVAQUONE
     Indication: ANTIFUNGAL PROPHYLAXIS
     Dosage: UNK
     Route: 048
     Dates: start: 20160412, end: 20160423
  18. OLOPATADINE HYDROCHLORIDE. [Concomitant]
     Active Substance: OLOPATADINE HYDROCHLORIDE
     Indication: RASH MACULO-PAPULAR
  19. MAGMITT [Concomitant]
     Active Substance: MAGNESIUM OXIDE
     Indication: CONSTIPATION
     Dosage: 330 MG, BID
     Route: 048
     Dates: start: 20150921
  20. FILGRASTIM [Concomitant]
     Active Substance: FILGRASTIM
     Indication: NEUTROPHIL COUNT DECREASED
     Dosage: 75 ?G, QD
     Route: 058
     Dates: start: 20150930, end: 20151001
  21. DOXORUBICIN [Suspect]
     Active Substance: DOXORUBICIN
     Indication: HODGKIN^S DISEASE
     Dosage: UNK, Q14D
     Route: 042
     Dates: start: 20150916, end: 20150916
  22. LOXOPROFEN EMEC [Concomitant]
     Active Substance: LOXOPROFEN
     Indication: PYREXIA
  23. ZOLPIDEM TARTRATE. [Concomitant]
     Active Substance: ZOLPIDEM TARTRATE
     Indication: INSOMNIA
     Dosage: 5 MG, QD
     Route: 048
     Dates: start: 20150913
  24. CALONAL [Concomitant]
     Active Substance: ACETAMINOPHEN
     Indication: PYREXIA
     Dosage: UNK
     Route: 048
     Dates: start: 20160423, end: 20160428
  25. BRENTUXIMAB VEDOTIN [Suspect]
     Active Substance: BRENTUXIMAB VEDOTIN
     Indication: HODGKIN^S DISEASE
     Dosage: 66 MG, Q14D
     Route: 042
     Dates: start: 20150916, end: 20150916
  26. BRENTUXIMAB VEDOTIN [Suspect]
     Active Substance: BRENTUXIMAB VEDOTIN
     Dosage: 49 MG, Q14D
     Route: 042
     Dates: start: 20151006, end: 20151102
  27. DACARBAZINE. [Suspect]
     Active Substance: DACARBAZINE
     Dosage: UNK, Q2WEEKS
     Route: 042
     Dates: start: 20151006, end: 20151102
  28. BETAMETHASONE, DEXCHLORPHENIRAMINE [Suspect]
     Active Substance: BETAMETHASONE\DEXCHLORPHENIRAMINE
     Dosage: 1 DF, TID
     Route: 048
     Dates: start: 20151026, end: 20160412
  29. LANSOPRAZOLE. [Concomitant]
     Active Substance: LANSOPRAZOLE
     Dosage: 15 MG, QD
     Route: 048
     Dates: start: 20150901
  30. OLOPATADINE HYDROCHLORIDE. [Concomitant]
     Active Substance: OLOPATADINE HYDROCHLORIDE
     Indication: PRURITUS
     Dosage: 5 MG, BID
     Route: 048
     Dates: start: 20150901
  31. DERMOVATE [Concomitant]
     Active Substance: CLOBETASOL
     Indication: PRURITUS
     Dosage: UNK
     Route: 062
     Dates: start: 201502
  32. CIPROFLOXACIN                      /00697202/ [Concomitant]
     Active Substance: CIPROFLOXACIN HYDROCHLORIDE
     Indication: INFECTION PROPHYLAXIS
     Dosage: 200 MG, BID
     Route: 048
     Dates: start: 20150922
  33. CALONAL [Concomitant]
     Active Substance: ACETAMINOPHEN
     Indication: ARTHRALGIA
     Dosage: 400 MG, UNK
     Route: 048
     Dates: start: 20150922
  34. RESTAMIN                           /00000401/ [Concomitant]
     Indication: PRURITUS
     Dosage: UNK
     Route: 062
     Dates: start: 20150909

REACTIONS (3)
  - Pneumocystis jirovecii pneumonia [Recovered/Resolved]
  - Erythema multiforme [Recovered/Resolved]
  - Rash maculo-papular [Recovering/Resolving]

NARRATIVE: CASE EVENT DATE: 20151001
